FAERS Safety Report 9384711 (Version 1)
Quarter: 2013Q3

REPORT INFORMATION
  Report Type: Spontaneous
  Country: DE (occurrence: DE)
  Receive Date: 20130705
  Receipt Date: 20130705
  Transmission Date: 20140515
  Serious: Yes (Disabling)
  Sender: FDA-Public Use
  Company Number: DE-SANOFI-AVENTIS-2013SA063098

PATIENT
  Sex: Male

DRUGS (3)
  1. JEVTANA [Suspect]
     Indication: PRODUCT USED FOR UNKNOWN INDICATION
     Route: 051
     Dates: start: 20121009, end: 20121009
  2. JEVTANA [Suspect]
     Indication: PRODUCT USED FOR UNKNOWN INDICATION
     Route: 051
     Dates: start: 20130123, end: 20130123
  3. ANALGESICS [Concomitant]

REACTIONS (2)
  - Skin mass [Not Recovered/Not Resolved]
  - Arthropathy [Recovered/Resolved]
